FAERS Safety Report 25873477 (Version 1)
Quarter: 2025Q4

REPORT INFORMATION
  Report Type: Spontaneous
  Country: US (occurrence: US)
  Receive Date: 20251002
  Receipt Date: 20251002
  Transmission Date: 20260117
  Serious: Yes (Other)
  Sender: PFIZER
  Company Number: US-PFIZER INC-PV202500117067

PATIENT
  Age: 59 Year
  Sex: Female

DRUGS (1)
  1. NURTEC ODT [Suspect]
     Active Substance: RIMEGEPANT SULFATE
     Dosage: DISSOLVE ONE TABLET ON TONGUE THEN SWALLOW ONCE DAILY IF NEEDED. MAX 1 TABLET PER 24 HOURS.
     Route: 048

REACTIONS (1)
  - Abdominal abscess [Unknown]
